FAERS Safety Report 5978123-5 (Version None)
Quarter: 2008Q4

REPORT INFORMATION
  Report Type: 
  Country: None (occurrence: None)
  Receive Date: 20081126
  Receipt Date: 20081117
  Transmission Date: 20090506
  Serious: Yes (Hospitalization)
  Sender: FDA-Public Use
  Company Number: 232613J08USA

PATIENT
  Age: 26 Year
  Sex: Male
  Weight: 73 kg

DRUGS (7)
  1. REBIF [Suspect]
     Indication: MULTIPLE SCLEROSIS
     Dosage: 44 MCG, 3 IN 1 WEEKS, SUBCUTANEOUS, 44 MCG, 3 IN 1 WEEKS, SUBCUTANEOUS
     Route: 058
     Dates: start: 20071001, end: 20080301
  2. REBIF [Suspect]
     Indication: MULTIPLE SCLEROSIS
     Dosage: 44 MCG, 3 IN 1 WEEKS, SUBCUTANEOUS, 44 MCG, 3 IN 1 WEEKS, SUBCUTANEOUS
     Route: 058
     Dates: start: 20080301
  3. BACLOFEN [Concomitant]
  4. CYMBALTA [Concomitant]
  5. VALIUM [Concomitant]
  6. NEURONTIN [Concomitant]
  7. INSULIN (INSULIN) [Concomitant]

REACTIONS (3)
  - DIABETIC KETOACIDOSIS [None]
  - IMPAIRED GASTRIC EMPTYING [None]
  - VOMITING [None]
